FAERS Safety Report 24413730 (Version 1)
Quarter: 2024Q4

REPORT INFORMATION
  Report Type: Spontaneous
  Country: US (occurrence: US)
  Receive Date: 20241008
  Receipt Date: 20241008
  Transmission Date: 20250114
  Serious: No
  Sender: MERCK
  Company Number: US-009507513-2409USA009335

PATIENT
  Age: 70 Year
  Sex: Male

DRUGS (1)
  1. BELSOMRA [Suspect]
     Active Substance: SUVOREXANT
     Indication: Insomnia
     Dosage: 10MG/ONE NIGHTLY
     Route: 048
     Dates: start: 2024

REACTIONS (2)
  - Hypersomnia [Not Recovered/Not Resolved]
  - Therapeutic product effect increased [Not Recovered/Not Resolved]

NARRATIVE: CASE EVENT DATE: 20240901
